FAERS Safety Report 14394017 (Version 1)
Quarter: 2018Q1

REPORT INFORMATION
  Report Type: Spontaneous
  Country: US (occurrence: US)
  Receive Date: 20180116
  Receipt Date: 20180116
  Transmission Date: 20180509
  Serious: Yes (Other)
  Sender: FDA-Public Use
  Company Number: US-REGENERON PHARMACEUTICALS, INC.-2017-16163

PATIENT

DRUGS (6)
  1. EYLEA [Suspect]
     Active Substance: AFLIBERCEPT
     Indication: RETINAL NEOVASCULARISATION
     Dosage: RIGHT EYE, EVERY 4, 5 OR 6 WEEKS
     Route: 031
     Dates: start: 20160916
  2. EYLEA [Suspect]
     Active Substance: AFLIBERCEPT
     Indication: EYE NAEVUS
  3. EYLEA [Suspect]
     Active Substance: AFLIBERCEPT
     Indication: MACULAR OEDEMA
     Dosage: LAST DOSE, RIGHT EYE, 9 WEEKS FROM THAT VISIT
     Route: 031
     Dates: start: 20170519, end: 20170519
  4. EYLEA [Suspect]
     Active Substance: AFLIBERCEPT
     Indication: VITREOUS DETACHMENT
  5. AVASTIN [Suspect]
     Active Substance: BEVACIZUMAB
     Indication: MACULAR DEGENERATION
     Dosage: RECEIVED FOR 3 YEARS, MONTHLY
  6. SYNTHROID [Concomitant]
     Active Substance: LEVOTHYROXINE SODIUM
     Indication: PRODUCT USED FOR UNKNOWN INDICATION
     Dosage: 162 ?G, UNK

REACTIONS (1)
  - Transient ischaemic attack [Unknown]

NARRATIVE: CASE EVENT DATE: 20170503
